FAERS Safety Report 16656610 (Version 1)
Quarter: 2019Q3

REPORT INFORMATION
  Report Type: Spontaneous
  Country: US (occurrence: US)
  Receive Date: 20190618
  Receipt Date: 20190618
  Transmission Date: 20191004
  Serious: No
  Sender: FDA-Public Use
  Company Number: None

PATIENT
  Age: 36 Year
  Sex: Male

DRUGS (1)
  1. HYDROXYPROG 250MG/ML (1ML) SDV [Suspect]
     Active Substance: HYDROXYPROGESTERONE
     Route: 058
     Dates: start: 201905

REACTIONS (3)
  - Product substitution issue [None]
  - Product formulation issue [None]
  - Adverse drug reaction [None]

NARRATIVE: CASE EVENT DATE: 20190618
